FAERS Safety Report 7591890-2 (Version None)
Quarter: 2011Q2

REPORT INFORMATION
  Report Type: 
  Country: None (occurrence: None)
  Receive Date: 20110627
  Receipt Date: 20110614
  Transmission Date: 20111010
  Serious: Yes (Other)
  Sender: FDA-Public Use
  Company Number: WAES 1106USA01642

PATIENT
  Age: 28 Year
  Sex: Male

DRUGS (3)
  1. SERTRALINE HYDROCHLORIDE [Concomitant]
  2. ISENTRESS [Suspect]
     Indication: HIV TEST
     Dosage: 400 MG/BID
     Route: 048
     Dates: start: 20110211
  3. SERTRALINE HYDROCHLORIDE [Concomitant]

REACTIONS (6)
  - ASPARTATE AMINOTRANSFERASE INCREASED [None]
  - ALCOHOL USE [None]
  - LOSS OF CONSCIOUSNESS [None]
  - CONVULSION [None]
  - BLOOD CREATINE PHOSPHOKINASE INCREASED [None]
  - ALANINE AMINOTRANSFERASE INCREASED [None]
